FAERS Safety Report 4490371-2 (Version None)
Quarter: 2004Q4

REPORT INFORMATION
  Report Type: 
  Country: None (occurrence: None)
  Receive Date: 20041102
  Receipt Date: 20041021
  Transmission Date: 20050328
  Serious: Yes (Hospitalization)
  Sender: FDA-Public Use
  Company Number: CH-BRISTOL-MYERS SQUIBB COMPANY-12745709

PATIENT
  Age: 38 Year
  Sex: Female
  Weight: 90 kg

DRUGS (8)
  1. ENDOXAN TABS [Suspect]
     Indication: WEGENER'S GRANULOMATOSIS
     Route: 048
     Dates: start: 20040715, end: 20040817
  2. BACTRIM [Suspect]
     Route: 048
     Dates: start: 20040715, end: 20040816
  3. MARCOUMAR [Suspect]
     Indication: HYPERCOAGULATION
     Route: 048
     Dates: start: 20040727, end: 20040816
  4. NEXIUM [Suspect]
     Route: 048
     Dates: start: 20040701, end: 20040820
  5. PREDNISONE [Concomitant]
     Dates: start: 20040715
  6. BELOC-ZOK [Concomitant]
  7. ATORVASTATIN CALCIUM [Concomitant]
     Dates: end: 20040817
  8. TORSEMIDE [Concomitant]
     Dates: end: 20040817

REACTIONS (3)
  - HEPATIC FAILURE [None]
  - RENAL FAILURE ACUTE [None]
  - VERTIGO [None]
